FAERS Safety Report 4708298-7 (Version None)
Quarter: 2005Q3

REPORT INFORMATION
  Report Type: 
  Country: None (occurrence: None)
  Receive Date: 20050707
  Receipt Date: 20050701
  Transmission Date: 20060218
  Serious: Yes (Hospitalization, Other)
  Sender: FDA-Public Use
  Company Number: 200515502US

PATIENT
  Age: 28 Year
  Sex: Female

DRUGS (1)
  1. LOVENOX [Suspect]
     Dosage: DOSE: ABOUT 60
     Route: 051
     Dates: start: 20050601, end: 20050627

REACTIONS (5)
  - CATHETER SITE HAEMATOMA [None]
  - DIABETIC KETOACIDOSIS [None]
  - GASTROINTESTINAL HAEMORRHAGE [None]
  - HAEMOGLOBIN DECREASED [None]
  - HYPOTENSION [None]
